FAERS Safety Report 13982506 (Version 1)
Quarter: 2017Q3

REPORT INFORMATION
  Report Type: Spontaneous
  Country: US (occurrence: US)
  Receive Date: 20170918
  Receipt Date: 20170918
  Transmission Date: 20171128
  Serious: No
  Sender: FDA-Public Use
  Company Number: US-MYLANLABS-2017030106

PATIENT
  Sex: Female

DRUGS (1)
  1. SULFANILAMIDE [Suspect]
     Active Substance: SULFANILAMIDE

REACTIONS (1)
  - Drug hypersensitivity [Unknown]
